FAERS Safety Report 6428653-7 (Version None)
Quarter: 2009Q4

REPORT INFORMATION
  Report Type: 
  Country: None (occurrence: None)
  Receive Date: 20091105
  Receipt Date: 20091026
  Transmission Date: 20100525
  Serious: Yes (Death, Hospitalization)
  Sender: FDA-Public Use
  Company Number: BE-PFIZER INC-2009288240

PATIENT
  Age: 75 Year
  Sex: Male

DRUGS (4)
  1. MEDROL [Suspect]
     Indication: ANAEMIA HAEMOLYTIC AUTOIMMUNE
     Dosage: 64 MG, 1X/DAY
     Route: 048
  2. MEDROL [Suspect]
     Dosage: 16 MG, 1X/DAY
  3. VORICONAZOLE [Suspect]
     Indication: BRONCHOPULMONARY ASPERGILLOSIS
     Route: 042
  4. ACETYLSALICYLIC ACID [Concomitant]
     Dosage: 160 MG, 1X/DAY
     Route: 048

REACTIONS (3)
  - BRONCHOPULMONARY ASPERGILLOSIS [None]
  - DRUG INEFFECTIVE [None]
  - MULTI-ORGAN FAILURE [None]
